FAERS Safety Report 7331400-8 (Version None)
Quarter: 2011Q1

REPORT INFORMATION
  Report Type: 
  Country: None (occurrence: None)
  Receive Date: 20110304
  Receipt Date: 20110219
  Transmission Date: 20110831
  Serious: No
  Sender: FDA-Public Use
  Company Number: ZA-ELI_LILLY_AND_COMPANY-ZA201102007423

PATIENT
  Age: 63 Year
  Sex: Female

DRUGS (2)
  1. LAMICTAL [Concomitant]
  2. ZYPREXA [Suspect]
     Indication: BIPOLAR DISORDER
     Route: 048

REACTIONS (2)
  - RED BLOOD CELL COUNT DECREASED [None]
  - WHITE BLOOD CELL COUNT DECREASED [None]
